FAERS Safety Report 9712003 (Version 3)
Quarter: 2013Q4

REPORT INFORMATION
  Report Type: Spontaneous
  Country: US (occurrence: US)
  Receive Date: 20131126
  Receipt Date: 20131211
  Transmission Date: 20140711
  Serious: Yes (Hospitalization)
  Sender: FDA-Public Use
  Company Number: US-BAXTER-2013BAX046567

PATIENT
  Age: 54 Year
  Sex: Male

DRUGS (2)
  1. DIANEAL LOW CALCIUM [Suspect]
     Indication: RENAL FAILURE CHRONIC
     Route: 033
     Dates: start: 2013, end: 201311
  2. DIANEAL LOW CALCIUM [Suspect]
     Route: 033
     Dates: start: 201311

REACTIONS (2)
  - Hernia [Recovering/Resolving]
  - Procedural pain [Unknown]
